FAERS Safety Report 21187273 (Version 1)
Quarter: 2022Q3

REPORT INFORMATION
  Report Type: Spontaneous
  Country: TW (occurrence: TW)
  Receive Date: 20220808
  Receipt Date: 20220808
  Transmission Date: 20221026
  Serious: Yes (Death, Other)
  Sender: FDA-Public Use
  Company Number: TW-BAYER-2022A108718

PATIENT

DRUGS (1)
  1. STIVARGA [Suspect]
     Active Substance: REGORAFENIB
     Indication: Colon cancer metastatic
     Dosage: UNK

REACTIONS (3)
  - Colon cancer metastatic [Fatal]
  - Metastases to peritoneum [None]
  - Metastases to lymph nodes [None]
